FAERS Safety Report 11179973 (Version 1)
Quarter: 2015Q2

REPORT INFORMATION
  Report Type: Spontaneous
  Country: US (occurrence: US)
  Receive Date: 20150611
  Receipt Date: 20150611
  Transmission Date: 20150821
  Serious: No
  Sender: FDA-Public Use
  Company Number: US-TEVA-556548USA

PATIENT
  Age: 59 Year
  Sex: Male

DRUGS (1)
  1. CAPECITABINE. [Suspect]
     Active Substance: CAPECITABINE
     Dosage: 4000 MILLIGRAM DAILY; 4 TABLETS TWICE A DAY FOR 14 DAYS EVERY 21 DAYS
     Route: 048
     Dates: start: 20150210

REACTIONS (1)
  - Labyrinthitis [Unknown]
